FAERS Safety Report 4698820-1 (Version None)
Quarter: 2005Q2

REPORT INFORMATION
  Report Type: 
  Country: None (occurrence: None)
  Receive Date: 20050623
  Receipt Date: 20050620
  Transmission Date: 20051028
  Serious: Yes (Other)
  Sender: FDA-Public Use
  Company Number: 005049

PATIENT
  Sex: Female

DRUGS (4)
  1. MEDROXYPROGESTERONE ACETATE [Suspect]
     Dosage: ORAL
     Route: 048
     Dates: start: 19850401, end: 20010701
  2. PREMARIN [Suspect]
     Dosage: ORAL
     Route: 048
     Dates: start: 19850401, end: 20010701
  3. PROVERA [Suspect]
     Dosage: ORAL
     Route: 048
     Dates: start: 19850401, end: 20010701
  4. PREMPRO [Suspect]
     Dosage: ORAL
     Route: 048
     Dates: start: 19850401, end: 20010701

REACTIONS (1)
  - BREAST CANCER FEMALE [None]
